FAERS Safety Report 6506150-8 (Version None)
Quarter: 2009Q4

REPORT INFORMATION
  Report Type: 
  Country: None (occurrence: None)
  Receive Date: 20091218
  Receipt Date: 20091208
  Transmission Date: 20100525
  Serious: Yes (Other)
  Sender: FDA-Public Use
  Company Number: US-PFIZER INC-2009307737

PATIENT
  Sex: Male
  Weight: 94.785 kg

DRUGS (9)
  1. GEODON [Suspect]
     Dosage: 40 MG, 1X/DAY
     Route: 048
     Dates: start: 20090101, end: 20090101
  2. GEODON [Suspect]
     Dosage: 80 MG, 1X/DAY
     Route: 048
     Dates: start: 20090101, end: 20090101
  3. GEODON [Suspect]
     Dosage: 120 MG, 1X/DAY
     Route: 048
     Dates: start: 20090101, end: 20091017
  4. GEODON [Suspect]
     Dosage: 80 MG, 1X/DAY
     Route: 048
     Dates: start: 20091017, end: 20091021
  5. GEODON [Suspect]
     Dosage: 40 MG, 1X/DAY
     Route: 048
     Dates: start: 20091021, end: 20091025
  6. LISDEXAMFETAMINE DIMESYLATE [Suspect]
     Indication: ATTENTION DEFICIT/HYPERACTIVITY DISORDER
     Dosage: 50 MG, 1X/DAY
     Route: 048
     Dates: start: 20071014, end: 20071106
  7. LISDEXAMFETAMINE DIMESYLATE [Suspect]
     Dosage: 120 MG, 1X/DAY
     Route: 048
     Dates: start: 20071107, end: 20091023
  8. LAMICTAL [Concomitant]
     Dosage: UNK
  9. ABILIFY [Concomitant]
     Dosage: UNK
     Dates: start: 20080707

REACTIONS (12)
  - ABNORMAL BEHAVIOUR [None]
  - ACNE [None]
  - BRUXISM [None]
  - CONDITION AGGRAVATED [None]
  - DISTURBANCE IN ATTENTION [None]
  - HYPERACUSIS [None]
  - IMPULSIVE BEHAVIOUR [None]
  - NEGATIVISM [None]
  - OFF LABEL USE [None]
  - OVERDOSE [None]
  - TIC [None]
  - TREMOR [None]
